FAERS Safety Report 8712972 (Version 2)
Quarter: 2012Q4

REPORT INFORMATION
  Report Type: 
  Country: US (occurrence: US)
  Receive Date: 20120808
  Receipt Date: 20121123
  Transmission Date: 20130627
  Serious: Yes (Hospitalization, Other)
  Sender: FDA-Public Use
  Company Number: US-JNJFOC-20120801889

PATIENT
  Sex: Female
  Weight: 48.08 kg

DRUGS (9)
  1. TOPAMAX [Suspect]
     Indication: MIGRAINE PROPHYLAXIS
     Route: 048
     Dates: start: 201202
  2. TOPAMAX [Suspect]
     Indication: MIGRAINE PROPHYLAXIS
     Route: 048
  3. TOPAMAX [Suspect]
     Indication: MIGRAINE PROPHYLAXIS
     Dosage: cut 200 mg tablets
     Route: 048
     Dates: start: 201206
  4. TOPAMAX [Suspect]
     Indication: MIGRAINE PROPHYLAXIS
     Route: 048
     Dates: start: 2004, end: 201202
  5. TOPIRAMATE [Suspect]
     Indication: MIGRAINE PROPHYLAXIS
     Route: 048
  6. FIORICET [Concomitant]
     Indication: MIGRAINE
     Dosage: as needed
     Route: 048
     Dates: start: 2004
  7. DONNATAL [Concomitant]
     Indication: ABDOMINAL RIGIDITY
     Dosage: as needed
     Route: 065
     Dates: start: 2009
  8. ZANAFLEX [Concomitant]
     Indication: MUSCLE RELAXANT THERAPY
     Dosage: as needed
     Route: 065
     Dates: start: 2009
  9. OXYCODONE [Concomitant]
     Indication: PAIN
     Dosage: as needed
     Route: 065
     Dates: start: 2012

REACTIONS (15)
  - Breast cancer [Recovered/Resolved]
  - Pulmonary mass [Not Recovered/Not Resolved]
  - Convulsion [Recovered/Resolved]
  - Migraine [Recovering/Resolving]
  - Visual impairment [Not Recovered/Not Resolved]
  - Lung abscess [Not Recovered/Not Resolved]
  - Thinking abnormal [Unknown]
  - Surgery [Unknown]
  - Dizziness [Not Recovered/Not Resolved]
  - Fall [Recovered/Resolved]
  - Foot fracture [Unknown]
  - Stress [Not Recovered/Not Resolved]
  - Wrong technique in drug usage process [Recovered/Resolved]
  - Syncope [Unknown]
  - Abnormal behaviour [Unknown]
